FAERS Safety Report 7546832-2 (Version None)
Quarter: 2011Q2

REPORT INFORMATION
  Report Type: 
  Country: None (occurrence: None)
  Receive Date: 20110614
  Receipt Date: 20110603
  Transmission Date: 20111010
  Serious: Yes (Hospitalization)
  Sender: FDA-Public Use
  Company Number: US-ROCHE-781125

PATIENT
  Sex: Female
  Weight: 53.5 kg

DRUGS (13)
  1. IPILIMUMAB [Suspect]
     Route: 042
     Dates: start: 20110330, end: 20110511
  2. MAXALT [Concomitant]
  3. CLOBETASOL PROPIONATE [Concomitant]
  4. ZOLPIDEM TARTRATE [Concomitant]
  5. COLACE [Concomitant]
  6. FIORICET [Concomitant]
  7. NISTATIN [Concomitant]
  8. POLYETHYLENE GLYCOL [Concomitant]
  9. XANAX [Concomitant]
  10. COMPAZINE [Concomitant]
  11. SENNOSIDE [Concomitant]
  12. BEVACIZUMAB [Suspect]
     Dosage: FREQUENCY FOUR TIMES EVERY THREE WEEKS
     Route: 042
     Dates: start: 20110330, end: 20110511
  13. TRIAMCINOLONE [Concomitant]

REACTIONS (1)
  - TRANSAMINASES INCREASED [None]
